FAERS Safety Report 19926892 (Version 14)
Quarter: 2022Q4

REPORT INFORMATION
  Report Type: Report from Study
  Country: BR (occurrence: BR)
  Receive Date: 20211006
  Receipt Date: 20221018
  Transmission Date: 20230112
  Serious: Yes (Death, Hospitalization, Other)
  Sender: FDA-Public Use
  Company Number: BR-BRISTOL-MYERS SQUIBB COMPANY-BMS-2021-102039

PATIENT
  Age: 75 Year
  Sex: Male
  Weight: 86 kg

DRUGS (13)
  1. PREDNISONE [Suspect]
     Active Substance: PREDNISONE
     Indication: Prostate cancer
     Dosage: RECEIVED 10MG ON 18-APR-2021.?MOST RECENT DOSE RECEIVED ON 24-AUG-2021?ON 25-AUG-2021 (0 MG)
     Route: 065
     Dates: start: 20210329, end: 20210824
  2. DOCETAXEL [Suspect]
     Active Substance: DOCETAXEL
     Indication: Prostate cancer
     Dosage: 19-APR-2021, 10-MAY-2021, 31-MAY-2021, 21-JUN-2021, 12-JUL-2021, 03-AUG-2021,MOST RECENT DOSE RECEIV
     Route: 065
     Dates: start: 20210329, end: 20210825
  3. MEROPENEM [Concomitant]
     Active Substance: MEROPENEM
     Indication: Febrile neutropenia
     Route: 042
     Dates: start: 20210908, end: 20210915
  4. MEROPENEM [Concomitant]
     Active Substance: MEROPENEM
  5. VANCOMYCIN [Concomitant]
     Active Substance: VANCOMYCIN
     Indication: Febrile neutropenia
     Route: 042
     Dates: start: 20210908, end: 20210915
  6. VANCOMYCIN [Concomitant]
     Active Substance: VANCOMYCIN
  7. ENOXAPARIN SODIUM [Concomitant]
     Active Substance: ENOXAPARIN SODIUM
     Indication: Febrile neutropenia
     Route: 058
     Dates: start: 20210905, end: 20210915
  8. ACETAMINOPHEN [Concomitant]
     Active Substance: ACETAMINOPHEN
     Indication: Dysuria
     Route: 048
     Dates: start: 20210512
  9. ONDANSETRON [Concomitant]
     Active Substance: ONDANSETRON
     Indication: Nausea
     Route: 048
     Dates: start: 20210712
  10. FILGRASTIM [Concomitant]
     Active Substance: FILGRASTIM
     Indication: Febrile neutropenia
     Dosage: 1 DOSAGE FORM= 300 UNIT NOS
     Route: 058
     Dates: start: 20210904, end: 20210911
  11. INVESTIGATIONAL PRODUCT [Concomitant]
     Active Substance: INVESTIGATIONAL PRODUCT
     Indication: Prophylaxis
     Dosage: UNK
     Route: 030
     Dates: start: 202103
  12. INVESTIGATIONAL PRODUCT [Concomitant]
     Active Substance: INVESTIGATIONAL PRODUCT
     Dosage: UNK
     Route: 030
     Dates: start: 20210426
  13. SYNTHROID [Concomitant]
     Active Substance: LEVOTHYROXINE SODIUM
     Indication: Supplementation therapy
     Dosage: 1 DF= 50 UNITS NOS
     Route: 051
     Dates: start: 20211007, end: 20211031

REACTIONS (2)
  - Guillain-Barre syndrome [Fatal]
  - Septic shock [Recovering/Resolving]

NARRATIVE: CASE EVENT DATE: 20210923
